FAERS Safety Report 6536267-3 (Version None)
Quarter: 2010Q1

REPORT INFORMATION
  Report Type: 
  Country: None (occurrence: None)
  Receive Date: 20100113
  Receipt Date: 20091231
  Transmission Date: 20100710
  Serious: No
  Sender: FDA-Public Use
  Company Number: US-ALLERGAN-0915934US

PATIENT
  Sex: Female

DRUGS (2)
  1. LATISSE [Suspect]
     Indication: GROWTH OF EYELASHES
     Dosage: 1 GTT, QHS
     Route: 061
  2. LATISSE [Suspect]
     Dosage: 1 GTT, QHS
     Route: 061

REACTIONS (6)
  - DRUG INEFFECTIVE [None]
  - DRY EYE [None]
  - EYE IRRITATION [None]
  - OCULAR HYPERAEMIA [None]
  - SKIN HYPERPIGMENTATION [None]
  - TRICHORRHEXIS [None]
